FAERS Safety Report 5802792-3 (Version None)
Quarter: 2008Q3

REPORT INFORMATION
  Report Type: 
  Country: None (occurrence: None)
  Receive Date: 20080708
  Receipt Date: 20080625
  Transmission Date: 20090109
  Serious: Yes (Hospitalization)
  Sender: FDA-Public Use
  Company Number: BE-AMGEN-UK282567

PATIENT
  Sex: Female

DRUGS (4)
  1. PANITUMUMAB [Suspect]
     Indication: SQUAMOUS CELL CARCINOMA
     Route: 042
     Dates: start: 20080522
  2. FLUOROURACIL [Suspect]
     Dates: start: 20080501
  3. CISPLATIN [Concomitant]
     Dates: start: 20080501
  4. DOCETAXEL [Concomitant]
     Dates: start: 20080501

REACTIONS (12)
  - ANOREXIA [None]
  - ARTERIOSPASM CORONARY [None]
  - CARDIOTOXICITY [None]
  - CORONARY ARTERY INSUFFICIENCY [None]
  - FEBRILE NEUTROPENIA [None]
  - LEFT ATRIAL DILATATION [None]
  - LEFT VENTRICULAR HYPERTROPHY [None]
  - MYOCARDIAL ISCHAEMIA [None]
  - NAUSEA [None]
  - NEUTROPENIA [None]
  - ORTHOSTATIC HYPOTENSION [None]
  - SYNCOPE [None]
